FAERS Safety Report 8401227-4 (Version None)
Quarter: 2012Q2

REPORT INFORMATION
  Report Type: 
  Country: None (occurrence: None)
  Receive Date: 20120601
  Receipt Date: 20120528
  Transmission Date: 20120825
  Serious: Yes (Other)
  Sender: FDA-Public Use
  Company Number: PHFR2012GB003207

PATIENT
  Age: 45 Year
  Sex: Male
  Weight: 106 kg

DRUGS (2)
  1. SIMVASTATIN [Concomitant]
     Dates: start: 20120210, end: 20120504
  2. DICLOFENAC [Suspect]
     Indication: PROCEDURAL PAIN
     Dates: start: 20120413

REACTIONS (1)
  - JAUNDICE CHOLESTATIC [None]
